FAERS Safety Report 20428372 (Version 1)
Quarter: 2022Q1

REPORT INFORMATION
  Report Type: Spontaneous
  Country: TR (occurrence: TR)
  Receive Date: 20220204
  Receipt Date: 20220204
  Transmission Date: 20220423
  Serious: Yes (Other)
  Sender: FDA-Public Use
  Company Number: TR-BAUSCH-BL-2022-002697

PATIENT
  Age: 50 Year
  Sex: Male

DRUGS (1)
  1. CYCLOPENTOLATE HYDROCHLORIDE [Suspect]
     Active Substance: CYCLOPENTOLATE HYDROCHLORIDE
     Indication: Retinitis pigmentosa
     Dosage: 70-80 DROPS PER DAY
     Route: 065

REACTIONS (6)
  - Drug abuse [Unknown]
  - Drug dependence [Unknown]
  - Hallucination, auditory [Recovered/Resolved]
  - Hallucination, visual [Recovered/Resolved]
  - Drug withdrawal syndrome [Unknown]
  - Intentional product misuse [Unknown]
